FAERS Safety Report 21723262 (Version 1)
Quarter: 2022Q4

REPORT INFORMATION
  Report Type: Report from Study
  Country: US (occurrence: US)
  Receive Date: 20221213
  Receipt Date: 20221213
  Transmission Date: 20230112
  Serious: Yes (Other)
  Sender: FDA-Public Use
  Company Number: US-PFIZER INC-PV202200061219

PATIENT
  Sex: Male

DRUGS (2)
  1. LYRICA [Suspect]
     Active Substance: PREGABALIN
     Indication: Product used for unknown indication
     Dosage: 150 MILLIGRAM, QID, (150 MG, 4X/DAY)
     Route: 048
  2. EFFEXOR [Suspect]
     Active Substance: VENLAFAXINE HYDROCHLORIDE
     Indication: Type 1 diabetes mellitus
     Dosage: 100 MILLIGRAM
     Route: 065

REACTIONS (2)
  - Spinal cord injury [Unknown]
  - Off label use [Unknown]
